FAERS Safety Report 10354598 (Version 1)
Quarter: 2014Q3

REPORT INFORMATION
  Report Type: Spontaneous
  Country: US (occurrence: None)
  Receive Date: 20140729
  Receipt Date: 20140729
  Transmission Date: 20150326
  Serious: Yes (Other)
  Sender: FDA-Public Use
  Company Number: None

PATIENT
  Age: 47 Year
  Sex: Female
  Weight: 49.9 kg

DRUGS (1)
  1. CIPROFLOXACIN. [Suspect]
     Active Substance: CIPROFLOXACIN
     Indication: CYSTITIS
     Dosage: 500 MG/1 PILL TWICE DAILY TAKEN BY MOUTH
     Route: 048
     Dates: start: 20140725, end: 20140726

REACTIONS (7)
  - Headache [None]
  - Somnolence [None]
  - Dizziness [None]
  - Muscular weakness [None]
  - Vertigo [None]
  - Dyspnoea [None]
  - Dysgeusia [None]

NARRATIVE: CASE EVENT DATE: 20140725
